FAERS Safety Report 7571203-2 (Version None)
Quarter: 2011Q2

REPORT INFORMATION
  Report Type: 
  Country: None (occurrence: None)
  Receive Date: 20110624
  Receipt Date: 20110607
  Transmission Date: 20111010
  Serious: Yes (Hospitalization)
  Sender: FDA-Public Use
  Company Number: A0815142A

PATIENT
  Age: 73 Year
  Sex: Female
  Weight: 87.7 kg

DRUGS (1)
  1. AVANDIA [Suspect]
     Dosage: 4MG PER DAY
     Route: 048
     Dates: start: 20000101, end: 20070101

REACTIONS (9)
  - CHEST PAIN [None]
  - HEART INJURY [None]
  - HEART RATE INCREASED [None]
  - PALPITATIONS [None]
  - STENT PLACEMENT [None]
  - ANXIETY [None]
  - FEAR [None]
  - ATRIAL FLUTTER [None]
  - PAIN IN EXTREMITY [None]
